FAERS Safety Report 10490937 (Version 1)
Quarter: 2014Q4

REPORT INFORMATION
  Report Type: Spontaneous
  Country: US (occurrence: US)
  Receive Date: 20141002
  Receipt Date: 20141002
  Transmission Date: 20150528
  Serious: No
  Sender: FDA-Public Use
  Company Number: US-GLAXOSMITHKLINE-A1044578A

PATIENT
  Age: 67 Year
  Sex: Female

DRUGS (4)
  1. BYSTOLIC [Concomitant]
     Active Substance: NEBIVOLOL HYDROCHLORIDE
  2. VITAMIN D [Concomitant]
     Active Substance: CHOLECALCIFEROL
  3. ADVAIR HFA [Suspect]
     Active Substance: FLUTICASONE PROPIONATE\SALMETEROL XINAFOATE
     Indication: CHRONIC OBSTRUCTIVE PULMONARY DISEASE
     Route: 055
     Dates: start: 2012
  4. CALCIUM [Concomitant]
     Active Substance: CALCIUM

REACTIONS (4)
  - Respiratory disorder [Unknown]
  - Drug ineffective [Unknown]
  - Product quality issue [Unknown]
  - Dyspnoea [Unknown]

NARRATIVE: CASE EVENT DATE: 201310
